FAERS Safety Report 13303903 (Version 1)
Quarter: 2017Q1

REPORT INFORMATION
  Report Type: Not Available
  Country: GR (occurrence: GR)
  Receive Date: 20170307
  Receipt Date: 20170307
  Transmission Date: 20170428
  Serious: Yes (Other)
  Sender: FDA-Public Use
  Company Number: GR--2017-GR-000002

PATIENT
  Age: 80 Year
  Sex: Female

DRUGS (1)
  1. DONEPEZIL HYDROCHLORIDE BRAND UNSPECIFIED (VIVIMED) [Suspect]
     Active Substance: DONEPEZIL HYDROCHLORIDE
     Indication: DEMENTIA ALZHEIMER^S TYPE
     Dosage: 30 MILLIGRAM

REACTIONS (2)
  - Myoclonus [Recovered/Resolved]
  - Prescribed overdose [Recovered/Resolved]
